FAERS Safety Report 17195845 (Version 5)
Quarter: 2021Q3

REPORT INFORMATION
  Report Type: Spontaneous
  Country: JP (occurrence: JP)
  Receive Date: 20191224
  Receipt Date: 20210908
  Transmission Date: 20211014
  Serious: Yes (Death, Hospitalization, Other)
  Sender: FDA-Public Use
  Company Number: JP-UNITED THERAPEUTICS-UNT-2015-015626

PATIENT
  Age: 37 Year
  Sex: Female
  Weight: 53 kg

DRUGS (26)
  1. REMODULIN [Suspect]
     Active Substance: TREPROSTINIL
     Dosage: 0.142 ?G/KG, CONTINUING
     Route: 058
     Dates: start: 2017, end: 2017
  2. BERASUS [Concomitant]
     Active Substance: BERAPROST SODIUM
     Indication: PULMONARY ARTERIAL HYPERTENSION
     Dosage: UNK
     Route: 048
     Dates: start: 201504, end: 20170218
  3. ADCIRCA [Concomitant]
     Active Substance: TADALAFIL
     Indication: PULMONARY ARTERIAL HYPERTENSION
     Dosage: UNK
     Route: 048
     Dates: start: 201505
  4. ALDACTONE A [Concomitant]
     Active Substance: SPIRONOLACTONE
     Dosage: UNK
     Route: 048
     Dates: start: 20181219
  5. LASIX [Concomitant]
     Active Substance: FUROSEMIDE
     Indication: CARDIAC FAILURE CHRONIC
     Dosage: UNK
     Route: 048
  6. REMODULIN [Suspect]
     Active Substance: TREPROSTINIL
     Dosage: 0.051 ?G/KG, CONTINUING
     Route: 058
     Dates: end: 2016
  7. SAMSCA [Concomitant]
     Active Substance: TOLVAPTAN
     Indication: PROPHYLAXIS
     Dosage: UNK
     Route: 048
     Dates: start: 20190805
  8. REMODULIN [Suspect]
     Active Substance: TREPROSTINIL
     Indication: PULMONARY ARTERIAL HYPERTENSION
     Dosage: UNK, CONTINUING
     Route: 058
     Dates: start: 20151126, end: 201511
  9. REVATIO [Concomitant]
     Active Substance: SILDENAFIL CITRATE
     Indication: PULMONARY ARTERIAL HYPERTENSION
     Dosage: UNK
     Route: 048
     Dates: start: 201504
  10. COCARL [Concomitant]
     Active Substance: ACETAMINOPHEN
     Dosage: 400 MG, ASNECESSARY
     Route: 048
     Dates: start: 20190821, end: 20191228
  11. REMODULIN [Suspect]
     Active Substance: TREPROSTINIL
     Dosage: 0.09 ?G/KG, CONTINUING
     Route: 058
     Dates: start: 2016
  12. OPSUMIT [Concomitant]
     Active Substance: MACITENTAN
     Indication: PULMONARY ARTERIAL HYPERTENSION
     Dosage: UNK
     Route: 048
     Dates: start: 20160706
  13. TRAMAL [Concomitant]
     Active Substance: TRAMADOL
     Indication: PROPHYLAXIS
     Dosage: 75 MG, QD (PER DAY)
     Route: 048
     Dates: start: 20161220, end: 20180725
  14. HIRUDOID [Concomitant]
     Active Substance: GLYCOSAMINOGLYCANS
     Indication: PROPHYLAXIS
     Dosage: UNK
     Route: 061
     Dates: start: 20180107
  15. COCARL [Concomitant]
     Active Substance: ACETAMINOPHEN
     Indication: PROPHYLAXIS
     Dosage: UNK
     Route: 048
     Dates: start: 20151129, end: 2017
  16. REMODULIN [Suspect]
     Active Substance: TREPROSTINIL
     Dosage: 0.107 ?G/KG, CONTINUING
     Route: 058
     Dates: end: 2017
  17. REMODULIN [Suspect]
     Active Substance: TREPROSTINIL
     Dosage: 0.128 ?G/KG, CONTINUING
     Route: 058
     Dates: start: 2017, end: 2017
  18. REMODULIN [Suspect]
     Active Substance: TREPROSTINIL
     Indication: PULMONARY ARTERIAL HYPERTENSION
     Dosage: UNK, CONTINUING
     Route: 041
     Dates: start: 202105, end: 20210817
  19. UPTRAVI [Concomitant]
     Active Substance: SELEXIPAG
     Indication: PULMONARY ARTERIAL HYPERTENSION
     Dosage: UNK
     Route: 048
     Dates: start: 20170219
  20. MUCOSTA [Concomitant]
     Active Substance: REBAMIPIDE
     Indication: PROPHYLAXIS
     Dosage: UNK
     Route: 048
     Dates: start: 20160415, end: 20160416
  21. REMODULIN [Suspect]
     Active Substance: TREPROSTINIL
     Dosage: 0.0039 ?G/KG, CONTINUING
     Route: 058
     Dates: start: 201511
  22. TRACLEER [Concomitant]
     Active Substance: BOSENTAN
     Indication: PULMONARY ARTERIAL HYPERTENSION
     Dosage: UNK
     Route: 048
     Dates: start: 201504, end: 20160706
  23. ALDACTONE A [Concomitant]
     Active Substance: SPIRONOLACTONE
     Indication: CARDIAC FAILURE CHRONIC
     Dosage: UNK
     Route: 048
     Dates: end: 20181121
  24. LYRICA [Concomitant]
     Active Substance: PREGABALIN
     Indication: PROPHYLAXIS
     Dosage: 50 MG, QD
     Route: 048
     Dates: start: 20190130, end: 20191218
  25. REMODULIN [Suspect]
     Active Substance: TREPROSTINIL
     Dosage: 0.150 ?G/KG, CONTINUING
     Route: 058
     Dates: end: 20210521
  26. TRAMCET [Concomitant]
     Active Substance: ACETAMINOPHEN\TRAMADOL
     Indication: PROPHYLAXIS
     Dosage: UNK, QD (1 DF/ DAY)
     Route: 048
     Dates: start: 20190821, end: 20191218

REACTIONS (16)
  - Injection site erythema [Recovering/Resolving]
  - Abdominal pain upper [Recovering/Resolving]
  - Cardiac failure [Recovering/Resolving]
  - Injection site induration [Recovered/Resolved]
  - Fatigue [Recovering/Resolving]
  - Nasopharyngitis [Recovering/Resolving]
  - Tachycardia [Not Recovered/Not Resolved]
  - Right ventricular failure [Fatal]
  - Hypokalaemia [Recovering/Resolving]
  - Injection site discharge [Recovered/Resolved]
  - Injection site pain [Recovered/Resolved]
  - Injection site pain [Recovering/Resolving]
  - Urine output decreased [Recovering/Resolving]
  - Injection site swelling [Recovered/Resolved]
  - Arthralgia [Recovering/Resolving]
  - Weight increased [Recovered/Resolved]

NARRATIVE: CASE EVENT DATE: 20151127
